FAERS Safety Report 11412228 (Version 1)
Quarter: 2015Q3

REPORT INFORMATION
  Report Type: Spontaneous
  Country: US (occurrence: US)
  Receive Date: 20150821
  Receipt Date: 20150821
  Transmission Date: 20151125
  Serious: No
  Sender: FDA-Public Use
  Company Number: US-ELI_LILLY_AND_COMPANY-US201202000701

PATIENT
  Sex: Male

DRUGS (4)
  1. HUMULIN 70/30 [Suspect]
     Active Substance: INSULIN HUMAN
     Dosage: 38 U, QD
     Dates: start: 2002
  2. HUMULIN N [Suspect]
     Active Substance: INSULIN HUMAN
     Dosage: UNK, UNKNOWN
  3. INSULIN [Concomitant]
     Active Substance: INSULIN NOS
  4. HUMULIN 70/30 [Suspect]
     Active Substance: INSULIN HUMAN
     Indication: TYPE 1 DIABETES MELLITUS
     Dosage: 38 U, QD
     Route: 065
     Dates: start: 2002

REACTIONS (4)
  - Anxiety [Unknown]
  - Blood glucose decreased [Unknown]
  - Therapeutic response delayed [Unknown]
  - Sleep disorder [Unknown]

NARRATIVE: CASE EVENT DATE: 20120322
